FAERS Safety Report 17338463 (Version 1)
Quarter: 2020Q1

REPORT INFORMATION
  Report Type: Spontaneous
  Country: US (occurrence: US)
  Receive Date: 20200129
  Receipt Date: 20200129
  Transmission Date: 20200409
  Serious: Yes (Other)
  Sender: FDA-Public Use
  Company Number: US-MELINTA THERAPEUTICS, INC-US-MLNT-20-00020

PATIENT
  Age: 54 Year
  Sex: Female

DRUGS (3)
  1. VANCOMYCIN [Concomitant]
     Active Substance: VANCOMYCIN
     Indication: OSTEOMYELITIS ACUTE
     Dosage: NOT PROVIDED
     Route: 042
  2. CEFTRIAXONE. [Concomitant]
     Active Substance: CEFTRIAXONE
     Indication: OSTEOMYELITIS ACUTE
     Dosage: NOT PROVIDED
     Route: 042
  3. BAXDELA [Suspect]
     Active Substance: DELAFLOXACIN MEGLUMINE
     Indication: OSTEOMYELITIS ACUTE
     Route: 048

REACTIONS (5)
  - Debridement [Unknown]
  - Angioplasty [Unknown]
  - Arterial stent insertion [Unknown]
  - Off label use [Unknown]
  - Drug effective for unapproved indication [Unknown]
